FAERS Safety Report 5591564-3 (Version None)
Quarter: 2008Q1

REPORT INFORMATION
  Report Type: 
  Country: None (occurrence: None)
  Receive Date: 20080115
  Receipt Date: 20080104
  Transmission Date: 20080703
  Serious: Yes (Death, Hospitalization)
  Sender: FDA-Public Use
  Company Number: US-JNJFOC-20080102255

PATIENT
  Age: 83 Year
  Sex: Female

DRUGS (5)
  1. ACETAMINOPHEN [Suspect]
     Route: 048
  2. ACETAMINOPHEN [Suspect]
     Indication: SUICIDE ATTEMPT
     Route: 048
  3. PROPOXYPHENE HYDROCHLORIDE [Suspect]
     Indication: SUICIDE ATTEMPT
     Route: 048
  4. CHLORDIAZEPOXIDE [Suspect]
     Indication: SUICIDE ATTEMPT
     Route: 048
  5. FUROSEMIDE [Suspect]
     Indication: SUICIDE ATTEMPT
     Route: 048

REACTIONS (5)
  - CARDIAC ARREST [None]
  - HEPATIC ENZYME INCREASED [None]
  - HYPERTENSION [None]
  - MULTIPLE DRUG OVERDOSE INTENTIONAL [None]
  - VENTRICULAR TACHYCARDIA [None]
